FAERS Safety Report 21530471 (Version 1)
Quarter: 2022Q4

REPORT INFORMATION
  Report Type: Spontaneous
  Country: CN (occurrence: CN)
  Receive Date: 20221031
  Receipt Date: 20221031
  Transmission Date: 20230113
  Serious: Yes (Other)
  Sender: FDA-Public Use
  Company Number: CN-HALEON-CNCH2022APC040854

PATIENT

DRUGS (4)
  1. IBUPROFEN [Suspect]
     Active Substance: IBUPROFEN
     Indication: Toothache
     Dosage: 0.3 G, BID
     Route: 048
     Dates: start: 20211123
  2. IBUPROFEN [Suspect]
     Active Substance: IBUPROFEN
     Indication: Mouth ulceration
  3. METRONIDAZOLE [Suspect]
     Active Substance: METRONIDAZOLE
     Indication: Toothache
     Dosage: 0.2 G, TID
     Route: 048
     Dates: start: 20211123
  4. METRONIDAZOLE [Suspect]
     Active Substance: METRONIDAZOLE
     Indication: Mouth ulceration

REACTIONS (3)
  - Lip ulceration [Recovering/Resolving]
  - Purulent discharge [Recovering/Resolving]
  - Mouth ulceration [Recovering/Resolving]

NARRATIVE: CASE EVENT DATE: 20211125
